FAERS Safety Report 6867398-6 (Version None)
Quarter: 2010Q3

REPORT INFORMATION
  Report Type: 
  Country: None (occurrence: None)
  Receive Date: 20100722
  Receipt Date: 20100708
  Transmission Date: 20110219
  Serious: Yes (Hospitalization, Other)
  Sender: FDA-Public Use
  Company Number: US-SHIRE-SPV1-2010-01237

PATIENT

DRUGS (1)
  1. ADDERALL XR 10 [Suspect]
     Dosage: 5 MG, 1X/DAY:QD
     Route: 048
     Dates: start: 20100701

REACTIONS (3)
  - CARDIAC ENZYMES INCREASED [None]
  - CHEST PAIN [None]
  - ELECTROCARDIOGRAM ABNORMAL [None]
